FAERS Safety Report 8120867-3 (Version None)
Quarter: 2012Q1

REPORT INFORMATION
  Report Type: 
  Country: None (occurrence: None)
  Receive Date: 20120203
  Receipt Date: 20120124
  Transmission Date: 20120608
  Serious: No
  Sender: FDA-Public Use
  Company Number: C-12-006

PATIENT
  Age: 51 Year
  Sex: Female
  Weight: 62.5964 kg

DRUGS (5)
  1. OXYCODONE HCL [Suspect]
     Indication: BREAKTHROUGH PAIN
     Dosage: 40-60MG, TID-QID, ORAL
     Route: 048
     Dates: start: 20120124
  2. VALIUM [Concomitant]
  3. SOMA [Concomitant]
  4. THYROID TAB [Concomitant]
  5. METHADONE HCL [Concomitant]

REACTIONS (1)
  - NO THERAPEUTIC RESPONSE [None]
